FAERS Safety Report 7534897-3 (Version None)
Quarter: 2011Q2

REPORT INFORMATION
  Report Type: 
  Country: None (occurrence: None)
  Receive Date: 20110609
  Receipt Date: 20081112
  Transmission Date: 20111010
  Serious: Yes (Death, Hospitalization, Other)
  Sender: FDA-Public Use
  Company Number: PHHY2008JP01441

PATIENT
  Sex: Female

DRUGS (7)
  1. ZOMETA [Suspect]
     Indication: BREAST CANCER
     Dosage: 4 MG, EVERY FOUR WEEKS
     Route: 042
     Dates: start: 20061204, end: 20070911
  2. HERCEPTIN [Concomitant]
     Dosage: 160 MG, UNK
     Route: 042
     Dates: start: 20070514
  3. FEMARA [Concomitant]
     Dosage: 2.5 MG, UNK
     Route: 048
     Dates: start: 20061204, end: 20070423
  4. GEMZAR [Concomitant]
     Dosage: 1200 MG
     Route: 042
  5. HERCEPTIN [Concomitant]
     Dosage: 100 MG, UNK
     Route: 042
     Dates: start: 20070521
  6. TAXOL [Concomitant]
     Dosage: 90 MG
     Route: 042
     Dates: start: 20070514
  7. TAXOL [Concomitant]
     Dosage: 60 MG
     Route: 033
     Dates: start: 20071106

REACTIONS (8)
  - BILE DUCT OBSTRUCTION [None]
  - JAUNDICE EXTRAHEPATIC OBSTRUCTIVE [None]
  - MALIGNANT PLEURAL EFFUSION [None]
  - BLOOD UREA INCREASED [None]
  - PLEURAL EFFUSION [None]
  - MALIGNANT ASCITES [None]
  - ASCITES [None]
  - LIVER FUNCTION TEST ABNORMAL [None]
